FAERS Safety Report 20895720 (Version 1)
Quarter: 2022Q2

REPORT INFORMATION
  Report Type: Spontaneous
  Country: US (occurrence: None)
  Receive Date: 20220531
  Receipt Date: 20220531
  Transmission Date: 20220721
  Serious: No
  Sender: FDA-Public Use
  Company Number: None

PATIENT
  Age: 84 Year
  Sex: Female
  Weight: 83.01 kg

DRUGS (17)
  1. IBRANCE [Suspect]
     Active Substance: PALBOCICLIB
     Indication: Breast cancer female
     Dosage: OTHER FREQUENCY : 21DON7DOFF;?
     Route: 048
     Dates: start: 20220114
  2. AMOXICILLIN [Concomitant]
     Active Substance: AMOXICILLIN
  3. ANASTROZOLE [Concomitant]
  4. ARANESP [Concomitant]
  5. ASPIRIN [Concomitant]
  6. ATORVASTATIN [Concomitant]
  7. CYANOCOBALAMIN [Concomitant]
     Active Substance: CYANOCOBALAMIN
  8. FAMOTIDINE [Concomitant]
  9. GABAPENTIN [Concomitant]
     Active Substance: GABAPENTIN
  10. MECLIZINE [Concomitant]
  11. METOPROLOL [Concomitant]
     Active Substance: METOPROLOL
  12. VITAMINS [Concomitant]
     Active Substance: VITAMINS
  13. OLMESARTAN [Concomitant]
  14. ONDANSETRON [Concomitant]
     Active Substance: ONDANSETRON
  15. PLYETHYLENE [Concomitant]
  16. PSYLLIUM [Concomitant]
     Active Substance: PLANTAGO SEED
  17. VITAMIN D3 [Concomitant]

REACTIONS (2)
  - Alopecia [None]
  - Red blood cell count decreased [None]
